FAERS Safety Report 6150234-3 (Version None)
Quarter: 2009Q2

REPORT INFORMATION
  Report Type: 
  Country: None (occurrence: None)
  Receive Date: 20090407
  Receipt Date: 20090313
  Transmission Date: 20091009
  Serious: Yes (Other)
  Sender: FDA-Public Use
  Company Number: B0566334A

PATIENT
  Sex: 0

DRUGS (1)
  1. THIOGUANINE [Suspect]
     Indication: CROHN'S DISEASE

REACTIONS (1)
  - SPLENOMEGALY [None]
